FAERS Safety Report 16094745 (Version 1)
Quarter: 2019Q1

REPORT INFORMATION
  Report Type: Spontaneous
  Country: US (occurrence: US)
  Receive Date: 20190320
  Receipt Date: 20190320
  Transmission Date: 20190418
  Serious: Yes (Other)
  Sender: FDA-Public Use
  Company Number: PHEH2019US012026

PATIENT
  Sex: Male

DRUGS (3)
  1. LAMICTAL [Suspect]
     Active Substance: LAMOTRIGINE
     Indication: AUTONOMIC SEIZURE
     Dosage: 350 MG, UNK
     Route: 065
  2. CLONAZEPAM TABLETS, USP [Suspect]
     Active Substance: CLONAZEPAM
     Indication: AUTONOMIC SEIZURE
     Dosage: 1 MG, QHS
     Route: 065
  3. CLONAZEPAM TABLETS, USP [Suspect]
     Active Substance: CLONAZEPAM
     Dosage: 0.5 MG, TID
     Route: 065

REACTIONS (2)
  - Fatigue [Unknown]
  - Seizure [Unknown]
